FAERS Safety Report 6370657-7 (Version None)
Quarter: 2009Q3

REPORT INFORMATION
  Report Type: 
  Country: None (occurrence: None)
  Receive Date: 20090923
  Receipt Date: 20070907
  Transmission Date: 20100115
  Serious: Yes (Hospitalization, Other)
  Sender: FDA-Public Use
  Company Number: US-ASTRAZENECA-2006UW26336

PATIENT
  Age: 4990 Day
  Sex: Male
  Weight: 90.7 kg

DRUGS (6)
  1. SEROQUEL [Suspect]
     Indication: ABNORMAL BEHAVIOUR
     Dosage: 50-100 MG
     Route: 048
     Dates: start: 20040108
  2. RISPERDAL [Concomitant]
  3. CONCERTA [Concomitant]
     Dates: start: 20040108
  4. LEXAPRO [Concomitant]
     Dates: start: 20040108
  5. ADDERALL XR 30 [Concomitant]
     Dates: start: 20040216
  6. ESKALITH CR [Concomitant]
     Dates: start: 20040216

REACTIONS (4)
  - BLOOD GLUCOSE INCREASED [None]
  - DIABETES MELLITUS [None]
  - DIABETES MELLITUS INADEQUATE CONTROL [None]
  - KETOACIDOSIS [None]
